FAERS Safety Report 14897162 (Version 1)
Quarter: 2018Q2

REPORT INFORMATION
  Report Type: Spontaneous
  Country: MA (occurrence: MA)
  Receive Date: 20180515
  Receipt Date: 20180515
  Transmission Date: 20180711
  Serious: Yes (Hospitalization)
  Sender: FDA-Public Use
  Company Number: MA-PURACAP PHARMACEUTICAL LLC-2018EPC00249

PATIENT
  Age: 10 Year
  Sex: Male

DRUGS (2)
  1. IBUPROFEN. [Suspect]
     Active Substance: IBUPROFEN
     Indication: INFLUENZA LIKE ILLNESS
     Dosage: UNK
     Route: 065
  2. IVY EXTRACT [Suspect]
     Active Substance: IVY EXTRACT
     Indication: INFLUENZA LIKE ILLNESS
     Route: 065

REACTIONS (1)
  - Erythema multiforme [Recovered/Resolved]
